FAERS Safety Report 4959166-7 (Version None)
Quarter: 2006Q1

REPORT INFORMATION
  Report Type: 
  Country: None (occurrence: None)
  Receive Date: 20060331
  Receipt Date: 20060320
  Transmission Date: 20060701
  Serious: Yes (Hospitalization, Other)
  Sender: FDA-Public Use
  Company Number: 2006GB00484

PATIENT
  Sex: Female

DRUGS (3)
  1. SEROQUEL [Suspect]
     Route: 048
     Dates: start: 20051219, end: 20060118
  2. RISPERDAL [Suspect]
     Indication: PSYCHOTIC DISORDER
     Dosage: INCREASED UP TO 3MG A DAY
     Route: 048
     Dates: start: 20051119
  3. RISPERDAL [Suspect]
     Route: 048
     Dates: end: 20051219

REACTIONS (5)
  - HEPATOMEGALY [None]
  - JAUNDICE [None]
  - LIVER FUNCTION TEST ABNORMAL [None]
  - PRURITUS [None]
  - RASH [None]
